FAERS Safety Report 17944616 (Version 3)
Quarter: 2020Q3

REPORT INFORMATION
  Report Type: Spontaneous
  Country: GB (occurrence: GB)
  Receive Date: 20200625
  Receipt Date: 20200701
  Transmission Date: 20201103
  Serious: Yes (Other)
  Sender: FDA-Public Use
  Company Number: GB-PFIZER INC-2020206436

PATIENT
  Age: 63 Year
  Sex: Female

DRUGS (3)
  1. RAMIPRIL. [Suspect]
     Active Substance: RAMIPRIL
     Dosage: UNK
     Route: 048
  2. AMLODIPINE [Concomitant]
     Active Substance: AMLODIPINE BESYLATE
     Dosage: UNK
  3. CANDESARTAN CILEXETIL. [Suspect]
     Active Substance: CANDESARTAN CILEXETIL
     Dosage: UNK
     Route: 048

REACTIONS (20)
  - Product formulation issue [Unknown]
  - Pain in extremity [Unknown]
  - Malaise [Unknown]
  - Pain [Unknown]
  - Cough [Unknown]
  - Asthma [Unknown]
  - Palpitations [Unknown]
  - Restless legs syndrome [Unknown]
  - Tachycardia [Unknown]
  - Abdominal pain upper [Unknown]
  - Product substitution issue [Unknown]
  - Tongue discolouration [Unknown]
  - Fatigue [Unknown]
  - Headache [Unknown]
  - Anxiety [Unknown]
  - Extrasystoles [Unknown]
  - Cardiac flutter [Unknown]
  - Dysphonia [Unknown]
  - Dry mouth [Unknown]
  - Wheezing [Unknown]
